FAERS Safety Report 8841836 (Version 2)
Quarter: 2013Q3

REPORT INFORMATION
  Report Type: Spontaneous
  Country: IT (occurrence: IT)
  Receive Date: 20121016
  Receipt Date: 20130819
  Transmission Date: 20140515
  Serious: Yes (Hospitalization)
  Sender: FDA-Public Use
  Company Number: IT-RANBAXY-2012R1-60303

PATIENT
  Age: 52 Year
  Sex: Male

DRUGS (2)
  1. SIMVASTATINA RANBAXY 40MG COMPRESSE RIVESTITE CON FILM [Suspect]
     Indication: DYSLIPIDAEMIA
     Dosage: UNK
     Route: 048
     Dates: start: 20030101, end: 20120903
  2. SANDIMMUN [Interacting]
     Indication: IMMUNOSUPPRESSANT DRUG THERAPY
     Dosage: UNK
     Route: 048
     Dates: start: 19950421, end: 20120905

REACTIONS (2)
  - Renal failure acute [Recovering/Resolving]
  - Drug interaction [Recovering/Resolving]
